FAERS Safety Report 6372741-0 (Version None)
Quarter: 2009Q3

REPORT INFORMATION
  Report Type: 
  Country: None (occurrence: None)
  Receive Date: 20090924
  Receipt Date: 20081106
  Transmission Date: 20100115
  Serious: No
  Sender: FDA-Public Use
  Company Number: US-ASTRAZENECA-2008UW24824

PATIENT
  Sex: Female
  Weight: 74.8 kg

DRUGS (2)
  1. SEROQUEL [Suspect]
     Indication: BIPOLAR DISORDER
     Route: 048
  2. BUSPAR [Concomitant]

REACTIONS (4)
  - MUSCULOSKELETAL STIFFNESS [None]
  - PARAESTHESIA [None]
  - SOMNOLENCE [None]
  - WEIGHT INCREASED [None]
